FAERS Safety Report 4956926-3 (Version None)
Quarter: 2006Q1

REPORT INFORMATION
  Report Type: 
  Country: None (occurrence: None)
  Receive Date: 20060323
  Receipt Date: 20060320
  Transmission Date: 20060701
  Serious: Yes (Hospitalization)
  Sender: FDA-Public Use
  Company Number: 2006BI002522

PATIENT
  Age: 58 Year
  Sex: Female

DRUGS (5)
  1. AVONEX [Suspect]
     Indication: MULTIPLE SCLEROSIS
     Dosage: 30 UG; QW; IM
     Route: 030
     Dates: start: 19970701
  2. BACLOFEN [Concomitant]
  3. ZANAFLEX [Concomitant]
  4. DANTRIUM [Concomitant]
  5. UROQID [Concomitant]

REACTIONS (6)
  - CARBON DIOXIDE INCREASED [None]
  - CARDIAC FAILURE CONGESTIVE [None]
  - CONSCIOUSNESS FLUCTUATING [None]
  - FATIGUE [None]
  - FEELING ABNORMAL [None]
  - OXYGEN SATURATION DECREASED [None]
